FAERS Safety Report 13917138 (Version 1)
Quarter: 2017Q3

REPORT INFORMATION
  Report Type: Spontaneous
  Country: US (occurrence: None)
  Receive Date: 20170827
  Receipt Date: 20170827
  Transmission Date: 20171127
  Serious: No
  Sender: FDA-Public Use
  Company Number: None

PATIENT
  Sex: Female

DRUGS (1)
  1. AFINITOR [Suspect]
     Active Substance: EVEROLIMUS
     Indication: BREAST CANCER FEMALE
     Route: 048
     Dates: start: 20170513, end: 20170805

REACTIONS (6)
  - Fatigue [None]
  - Pain [None]
  - Therapy cessation [None]
  - Myalgia [None]
  - Mood altered [None]
  - Constipation [None]
